FAERS Safety Report 15943600 (Version 4)
Quarter: 2019Q1

REPORT INFORMATION
  Report Type: Report from Study
  Country: MX (occurrence: MX)
  Receive Date: 20190210
  Receipt Date: 20190314
  Transmission Date: 20190417
  Serious: Yes (Other)
  Sender: FDA-Public Use
  Company Number: PHHY2019MX029894

PATIENT
  Sex: Male
  Weight: 78 kg

DRUGS (13)
  1. CILOPRIN [Concomitant]
     Indication: GOUT
     Dosage: 1 DF, QD
     Route: 048
  2. FERANIN FOL [Concomitant]
     Indication: CROHN^S DISEASE
     Dosage: 2 DF, QD
     Route: 048
  3. SALOFALK [Concomitant]
     Active Substance: MESALAMINE
     Indication: CROHN^S DISEASE
     Dosage: 6 DF, QD (LONG TIME AGO)
     Route: 048
  4. GALVUS MET [Suspect]
     Active Substance: METFORMIN HYDROCHLORIDE\VILDAGLIPTIN
     Indication: DIABETES MELLITUS
     Dosage: 1 DF (METFORMIN 500 MG, VILDAGLIPTIN 50 MG), BID (ONE AT MORNING AND ONE AT NIGHT)
     Route: 048
  5. EXELON PATCH [Suspect]
     Active Substance: RIVASTIGMINE
     Indication: EMBOLISM
  6. LODESTAR ZID [Concomitant]
     Indication: PRODUCT USED FOR UNKNOWN INDICATION
     Dosage: UNK
     Route: 065
  7. EXELON PATCH [Suspect]
     Active Substance: RIVASTIGMINE
     Indication: MEMORY IMPAIRMENT
  8. NORFENON [Concomitant]
     Indication: CARDIAC DISORDER
     Dosage: 2 DF, QD
     Route: 065
  9. NORFENON [Concomitant]
     Dosage: 1 DF, QD (LONG TIME AGO)
     Route: 048
  10. VYTORIN [Concomitant]
     Active Substance: EZETIMIBE\SIMVASTATIN
     Indication: PRODUCT USED FOR UNKNOWN INDICATION
     Dosage: 1 DF (1020), UNK
     Route: 065
  11. LANOXIN [Concomitant]
     Active Substance: DIGOXIN
     Indication: PRODUCT USED FOR UNKNOWN INDICATION
     Dosage: UNK
     Route: 065
  12. EXELON PATCH [Suspect]
     Active Substance: RIVASTIGMINE
     Indication: LANGUAGE DISORDER
     Dosage: 9.5 MG, QD PATCH 10 (CM2) (5 YEARS AGO)
     Route: 062
     Dates: start: 2015
  13. ANGIOTROFIN [Concomitant]
     Active Substance: DILTIAZEM HYDROCHLORIDE
     Indication: CARDIAC DISORDER
     Dosage: 2 DF, QD (MORE THAN 10 YEARS AGO)
     Route: 048

REACTIONS (5)
  - Cardiac arrest [Recovered/Resolved]
  - Haemoglobin decreased [Recovered/Resolved]
  - Pancreatic disorder [Recovered/Resolved]
  - Product use in unapproved indication [Unknown]
  - Pleural effusion [Recovered/Resolved]
